FAERS Safety Report 14218155 (Version 1)
Quarter: 2017Q4

REPORT INFORMATION
  Report Type: Spontaneous
  Country: RU (occurrence: RU)
  Receive Date: 20171123
  Receipt Date: 20171123
  Transmission Date: 20180321
  Serious: Yes (Other)
  Sender: FDA-Public Use
  Company Number: RU-ASTRAZENECA-2017SF18304

PATIENT
  Age: 62 Year
  Sex: Male
  Weight: 70 kg

DRUGS (6)
  1. LORISTA [Concomitant]
     Active Substance: LOSARTAN POTASSIUM
  2. BISOPROLOL [Concomitant]
     Active Substance: BISOPROLOL
  3. ASPIRIN CARDIO [Concomitant]
     Active Substance: ASPIRIN
  4. NOLPAZA [Concomitant]
     Active Substance: PANTOPRAZOLE SODIUM
  5. ATORVASTATIN [Concomitant]
     Active Substance: ATORVASTATIN
  6. BRILINTA [Suspect]
     Active Substance: TICAGRELOR
     Indication: MYOCARDIAL INFARCTION
     Route: 048
     Dates: start: 201705

REACTIONS (2)
  - Non-cardiac chest pain [Recovered/Resolved]
  - Osteochondrosis [Unknown]

NARRATIVE: CASE EVENT DATE: 20171110
